FAERS Safety Report 8286009-9 (Version None)
Quarter: 2012Q2

REPORT INFORMATION
  Report Type: 
  Country: None (occurrence: None)
  Receive Date: 20120416
  Receipt Date: 20120404
  Transmission Date: 20120825
  Serious: Yes (Hospitalization)
  Sender: FDA-Public Use
  Company Number: US-BIOGENIDEC-2012BI011820

PATIENT
  Age: 53 Year
  Sex: Male

DRUGS (17)
  1. ATROPINE [Concomitant]
  2. TYSABRI [Suspect]
     Indication: CROHN'S DISEASE
     Route: 042
     Dates: start: 20110825, end: 20111107
  3. PREDNISONE TAPER [Concomitant]
     Dates: start: 20110101, end: 20110101
  4. USTEKINUMAB [Concomitant]
     Indication: CROHN'S DISEASE
     Dates: start: 20110101
  5. ADALIMUMAB [Concomitant]
     Indication: CROHN'S DISEASE
     Dates: end: 20110101
  6. METHOTREXATE [Concomitant]
     Indication: CROHN'S DISEASE
     Dates: end: 20110101
  7. ALENDRONATE SODIUM [Concomitant]
  8. MINOCYCLINE HCL [Concomitant]
  9. MUPIROCIN [Concomitant]
  10. FOLIC ACID [Concomitant]
  11. DIPHENOXYLATE [Concomitant]
  12. PREDNISONE TAPER [Concomitant]
     Indication: CROHN'S DISEASE
     Dates: start: 20110101, end: 20110101
  13. RASAGILINE [Concomitant]
  14. PRAMIPEXOLE DIHYDROCHLORIDE [Concomitant]
  15. CARBIDOPA [Concomitant]
  16. LEVODOPA [Concomitant]
  17. ERGOCALCIFEROL [Concomitant]

REACTIONS (3)
  - GASTROENTERITIS BACTERIAL [None]
  - BACTERAEMIA [None]
  - LISTERIOSIS [None]
